FAERS Safety Report 6757711-2 (Version None)
Quarter: 2010Q2

REPORT INFORMATION
  Report Type: 
  Country: None (occurrence: None)
  Receive Date: 20100604
  Receipt Date: 20100604
  Transmission Date: 20101027
  Serious: Yes (Hospitalization)
  Sender: FDA-Public Use
  Company Number: None

PATIENT
  Age: 38 Year
  Sex: Female
  Weight: 81.1939 kg

DRUGS (2)
  1. ERLOTINIB HYDROCHLORIDE [Suspect]
     Indication: BREAST CANCER
     Dosage: 150MG 1 X DAY PO
     Route: 048
     Dates: start: 20100503, end: 20100523
  2. BENDAMUSTINE 120MG/M2 CEPHALON [Suspect]
     Indication: BREAST CANCER
     Dosage: 228MG DAYS 1 + 2 Q28D IV
     Route: 042
     Dates: start: 20100503, end: 20100504

REACTIONS (7)
  - BREAST DISCHARGE [None]
  - BREAST HAEMORRHAGE [None]
  - CHEST DISCOMFORT [None]
  - DECREASED APPETITE [None]
  - DIARRHOEA [None]
  - HAEMOGLOBIN DECREASED [None]
  - PYREXIA [None]
